FAERS Safety Report 6114763-0 (Version None)
Quarter: 2009Q1

REPORT INFORMATION
  Report Type: 
  Country: None (occurrence: None)
  Receive Date: 20090313
  Receipt Date: 20090302
  Transmission Date: 20090719
  Serious: Yes (Other)
  Sender: FDA-Public Use
  Company Number: AU-SANOFI-SYNTHELABO-A01200902304

PATIENT
  Sex: Female

DRUGS (1)
  1. STILNOX [Suspect]
     Dosage: UNK
     Route: 048

REACTIONS (2)
  - OFF LABEL USE [None]
  - VICTIM OF SEXUAL ABUSE [None]
